FAERS Safety Report 20842860 (Version 2)
Quarter: 2022Q3

REPORT INFORMATION
  Report Type: Spontaneous
  Country: NL (occurrence: NL)
  Receive Date: 20220518
  Receipt Date: 20220919
  Transmission Date: 20221027
  Serious: Yes (Other)
  Sender: FDA-Public Use
  Company Number: NL-LRB-00806078

PATIENT
  Sex: Male
  Weight: 72 kg

DRUGS (5)
  1. TAMSULOSIN [Suspect]
     Active Substance: TAMSULOSIN
     Indication: Benign prostatic hyperplasia
     Dosage: 1X 1 DAY 1 CAPSULE
     Route: 065
     Dates: start: 2018
  2. CLOPIDOGREL TABLET   75MG / GREPID TABLET FILMOMHULD 75MGGREPID TAB... [Concomitant]
     Indication: Product used for unknown indication
     Dosage: TABLET, 75 MG (MILLIGRAM) ()
     Route: 065
  3. METOPROLOL TABLET MGA  25MG (SUCCINAAT) / Brand name not specifiedM... [Concomitant]
     Indication: Product used for unknown indication
     Dosage: CONTROLLED RELEASE TABLET, 25 MG (MILLIGRAM) ()
     Route: 065
  4. PRAVASTATINE TABLET 20MG / Brand name not specifiedPRAVASTATINE TAB... [Concomitant]
     Indication: Product used for unknown indication
     Dosage: TABLET, 20 MG (MILLIGRAM) ()
     Route: 065
  5. PROMETHAZINE TABLET OMHULD 25MG / Brand name not specifiedPROMETHAZ... [Concomitant]
     Indication: Product used for unknown indication
     Dosage: COATED TABLET, 25 MG (MILLIGRAMS) ()
     Route: 065

REACTIONS (2)
  - Retrograde ejaculation [Not Recovered/Not Resolved]
  - Gynaecomastia [Not Recovered/Not Resolved]
